FAERS Safety Report 19625181 (Version 1)
Quarter: 2021Q3

REPORT INFORMATION
  Report Type: Report from Study
  Country: IT (occurrence: IT)
  Receive Date: 20210729
  Receipt Date: 20210729
  Transmission Date: 20211014
  Serious: Yes (Hospitalization)
  Sender: FDA-Public Use
  Company Number: IT-CELLTRION INC.-2021IT009834

PATIENT

DRUGS (3)
  1. FLUDARA [Suspect]
     Active Substance: FLUDARABINE PHOSPHATE
     Indication: CHRONIC LYMPHOCYTIC LEUKAEMIA
     Dosage: 1 DF, CYCLIC
     Route: 042
     Dates: start: 20210316
  2. ENDOXAN [Suspect]
     Active Substance: CYCLOPHOSPHAMIDE
     Indication: CHRONIC LYMPHOCYTIC LEUKAEMIA
     Dosage: 1 DF, CYCLIC
     Route: 042
     Dates: start: 20210316
  3. RITUXIMAB (UNKNOWN) [Suspect]
     Active Substance: RITUXIMAB
     Indication: CHRONIC LYMPHOCYTIC LEUKAEMIA
     Dosage: 1 DF, CYCLIC
     Route: 042
     Dates: start: 20210316

REACTIONS (7)
  - Chills [Recovering/Resolving]
  - Aspartate aminotransferase decreased [Recovering/Resolving]
  - Monocyte count increased [Recovering/Resolving]
  - Vomiting [Recovering/Resolving]
  - Haemoglobin decreased [Recovering/Resolving]
  - Hyperpyrexia [Recovering/Resolving]
  - Febrile neutropenia [Recovering/Resolving]

NARRATIVE: CASE EVENT DATE: 20210331
